FAERS Safety Report 17418914 (Version 1)
Quarter: 2020Q1

REPORT INFORMATION
  Report Type: Spontaneous
  Country: DE (occurrence: DE)
  Receive Date: 20200214
  Receipt Date: 20200214
  Transmission Date: 20200409
  Serious: Yes (Other)
  Sender: FDA-Public Use
  Company Number: DE-BAYER-2020-020283

PATIENT
  Sex: Male

DRUGS (5)
  1. TAVOR [FLUCONAZOLE] [Suspect]
     Active Substance: FLUCONAZOLE
  2. LEVOFLOXACINE [LEVOFLOXACIN] [Suspect]
     Active Substance: LEVOFLOXACIN
     Dosage: UNK
  3. MOXIFLOXACIN ORAL [Suspect]
     Active Substance: MOXIFLOXACIN
  4. CIPROBAY [CIPROFLOXACIN BETAIN] [Suspect]
     Active Substance: CIPROFLOXACIN
     Dosage: UNK
  5. CORTISONE [Suspect]
     Active Substance: CORTISONE

REACTIONS (6)
  - Cataract [None]
  - Panic attack [None]
  - Depression [None]
  - Anxiety [None]
  - Retinal detachment [None]
  - Fatigue [None]
